FAERS Safety Report 5252055-2 (Version None)
Quarter: 2007Q1

REPORT INFORMATION
  Report Type: 
  Country: None (occurrence: None)
  Receive Date: 20070226
  Receipt Date: 20070213
  Transmission Date: 20070707
  Serious: Yes (Hospitalization)
  Sender: FDA-Public Use
  Company Number: 2007PV028312

PATIENT
  Age: 54 Year
  Sex: Female
  Weight: 104 kg

DRUGS (5)
  1. BYETTA [Suspect]
     Indication: DIABETES MELLITUS NON-INSULIN-DEPENDENT
     Dosage: 10 MCG ; PO
     Route: 048
     Dates: start: 20060920, end: 20061201
  2. HUMALOG MIX 75/25 [Suspect]
     Indication: DIABETES MELLITUS NON-INSULIN-DEPENDENT
     Dosage: SC
     Route: 058
     Dates: start: 20030101
  3. ACTOS [Concomitant]
  4. SIMVASTATIN [Concomitant]
  5. DOMPERIDONE [Concomitant]

REACTIONS (4)
  - HYPERGLYCAEMIA [None]
  - NAUSEA [None]
  - URTICARIA GENERALISED [None]
  - WEIGHT DECREASED [None]
